FAERS Safety Report 13377880 (Version 1)
Quarter: 2017Q1

REPORT INFORMATION
  Report Type: Spontaneous
  Country: FR (occurrence: FR)
  Receive Date: 20170328
  Receipt Date: 20170328
  Transmission Date: 20170429
  Serious: Yes (Other)
  Sender: FDA-Public Use
  Company Number: FR-009507513-1702FRA005741

PATIENT
  Age: 85 Year
  Sex: Male
  Weight: 85 kg

DRUGS (18)
  1. LASILIX [Concomitant]
     Active Substance: FUROSEMIDE
  2. BUDESONIDE. [Concomitant]
     Active Substance: BUDESONIDE
     Dosage: 1/2 MG
  3. LANSOYL [Concomitant]
     Active Substance: MINERAL OIL
  4. LOVENOX [Concomitant]
     Active Substance: ENOXAPARIN SODIUM
  5. TARDYFERON [Concomitant]
     Active Substance: FERROUS SULFATE
     Dosage: 80 MG, UNK
  6. MOVICOL [Concomitant]
     Active Substance: POLYETHYLENE GLYCOL 3350\POTASSIUM CHLORIDE\SODIUM BICARBONATE\SODIUM CHLORIDE
  7. KARDEGIC [Concomitant]
     Active Substance: ASPIRIN LYSINE
     Dosage: 75 MG, UNK
  8. SINEMET [Suspect]
     Active Substance: CARBIDOPA\LEVODOPA
     Dosage: 1 TABLET PER INTAKE
     Route: 048
     Dates: start: 201604
  9. BI-PROFENID [Concomitant]
     Active Substance: KETOPROFEN
  10. PANTOPRAZOLE [Concomitant]
     Active Substance: PANTOPRAZOLE SODIUM
     Dosage: 40 MG, UNK
  11. SINEMET [Suspect]
     Active Substance: CARBIDOPA\LEVODOPA
     Indication: PARKINSON^S DISEASE
     Dosage: 1 TABLET 250/25MG 6QD
     Route: 048
  12. CLINUTREN [Concomitant]
  13. EDUCTYL [Concomitant]
     Active Substance: POTASSIUM BITARTRATE\SODIUM BICARBONATE
  14. NORMACOL [Concomitant]
     Active Substance: KARAYA GUM
  15. SINEMET [Suspect]
     Active Substance: CARBIDOPA\LEVODOPA
     Dosage: 14 TABS, QD(2 IN MORN, 2 AT 11:00, 2 AT 14:00, 2 AT 17:00, 2 AT 20:00, 2 AT 23:00 AND 2 BEFORE SLEEP
     Route: 048
     Dates: start: 20170203
  16. CRESTOR [Concomitant]
     Active Substance: ROSUVASTATIN CALCIUM
  17. SPECIAFOLDINE [Concomitant]
     Active Substance: FOLIC ACID
  18. IPRATROPIUM BROMIDE. [Concomitant]
     Active Substance: IPRATROPIUM BROMIDE
     Dosage: 0.5 MG, UNK

REACTIONS (5)
  - Dyskinesia [Unknown]
  - Myocardial infarction [Unknown]
  - Somnolence [Unknown]
  - Prescribed overdose [Unknown]
  - Osteoarthritis [Unknown]

NARRATIVE: CASE EVENT DATE: 2006
